FAERS Safety Report 24323560 (Version 1)
Quarter: 2024Q3

REPORT INFORMATION
  Report Type: Spontaneous
  Country: HU (occurrence: HU)
  Receive Date: 20240916
  Receipt Date: 20240916
  Transmission Date: 20241017
  Serious: Yes (Other)
  Sender: TEVA
  Company Number: None

PATIENT
  Age: 51 Year
  Sex: Female

DRUGS (12)
  1. LETROZOLE [Suspect]
     Active Substance: LETROZOLE
     Indication: Invasive ductal breast carcinoma
     Dosage: 2.5 MG
     Route: 065
     Dates: start: 201910
  2. LETROZOLE [Suspect]
     Active Substance: LETROZOLE
     Indication: Invasive ductal breast carcinoma
     Dosage: 2.5 MG
     Route: 065
     Dates: start: 202010
  3. DENOSUMAB [Concomitant]
     Active Substance: DENOSUMAB
     Indication: Breast cancer
     Dosage: UNK
     Route: 058
     Dates: start: 202010
  4. IBANDRONIC ACID [Suspect]
     Active Substance: IBANDRONIC ACID
     Indication: Invasive ductal breast carcinoma
     Dosage: UNK (8 CYCLES)
     Route: 042
     Dates: start: 201704
  5. GOSERELIN [Concomitant]
     Active Substance: GOSERELIN
     Indication: Breast cancer
     Dosage: UNK
     Route: 065
     Dates: start: 202010
  6. EPIRUBICIN [Suspect]
     Active Substance: EPIRUBICIN
     Indication: Invasive ductal breast carcinoma
     Dosage: UNK (8 CYCLES)
     Route: 065
     Dates: start: 201704
  7. RIBOCICLIB [Suspect]
     Active Substance: RIBOCICLIB
     Indication: Breast cancer
     Dosage: 600 MG
     Route: 065
     Dates: start: 201910
  8. RIBOCICLIB [Suspect]
     Active Substance: RIBOCICLIB
     Indication: Breast cancer
     Dosage: 600 MG
     Route: 065
     Dates: start: 202010
  9. EVEROLIMUS [Suspect]
     Active Substance: EVEROLIMUS
     Indication: Breast cancer
     Dosage: UNK
     Route: 065
     Dates: start: 202208, end: 202209
  10. EXEMESTANE [Concomitant]
     Active Substance: EXEMESTANE
     Indication: Breast cancer
     Dosage: UNK
     Route: 065
     Dates: start: 202208, end: 202209
  11. DOCETAXEL [Suspect]
     Active Substance: DOCETAXEL\DOCETAXEL ANHYDROUS
     Indication: Breast cancer
     Dosage: UNK (8 CYCLES)
     Route: 065
     Dates: start: 201704
  12. TAMOXIFEN CITRATE [Concomitant]
     Active Substance: TAMOXIFEN CITRATE
     Indication: Breast cancer
     Dosage: UNK
     Route: 065
     Dates: start: 201710

REACTIONS (10)
  - Neutropenia [Unknown]
  - Mucosal inflammation [Unknown]
  - Metastases to lung [Unknown]
  - Metastases to lymph nodes [Unknown]
  - Metastases to the mediastinum [Unknown]
  - Metastases to bone [Unknown]
  - Mucosal inflammation [Unknown]
  - Hydrothorax [Unknown]
  - Hypertension [Unknown]
  - Metastases to the mediastinum [Unknown]

NARRATIVE: CASE EVENT DATE: 20170701
